FAERS Safety Report 23540200 (Version 1)
Quarter: 2024Q1

REPORT INFORMATION
  Report Type: Spontaneous
  Country: FR (occurrence: FR)
  Receive Date: 20240219
  Receipt Date: 20240219
  Transmission Date: 20240410
  Serious: Yes (Hospitalization, Other)
  Sender: FDA-Public Use
  Company Number: None

PATIENT
  Age: 39 Year
  Sex: Female
  Weight: 93 kg

DRUGS (3)
  1. VENLAFAXINE [Suspect]
     Active Substance: VENLAFAXINE HYDROCHLORIDE
     Indication: Depression
     Route: 065
     Dates: start: 20230925, end: 20230925
  2. ALCOHOL [Suspect]
     Active Substance: ALCOHOL
     Dosage: 5 BEERS
     Route: 048
     Dates: start: 20230925, end: 20230925
  3. COCAINE [Suspect]
     Active Substance: COCAINE
     Dosage: 0.5G
     Route: 065
     Dates: start: 20230925, end: 20230925

REACTIONS (2)
  - Generalised tonic-clonic seizure [Recovered/Resolved]
  - Drug abuse [Not Recovered/Not Resolved]

NARRATIVE: CASE EVENT DATE: 20230925
